FAERS Safety Report 25956247 (Version 1)
Quarter: 2025Q4

REPORT INFORMATION
  Report Type: Spontaneous
  Country: EG (occurrence: EG)
  Receive Date: 20251024
  Receipt Date: 20251024
  Transmission Date: 20260118
  Serious: Yes (Death, Other)
  Sender: Onesource Specialty Pharma
  Company Number: EG-STRIDES ARCOLAB LIMITED-2025OS001019

PATIENT

DRUGS (21)
  1. ETOPOSIDE [Suspect]
     Active Substance: ETOPOSIDE
     Indication: Atypical teratoid/rhabdoid tumour of CNS
     Dosage: INDUCTION CHEMOTHERAPY, ON DAY 1,2, AND 3 OF WEEK 4 AND  CONTINUED FOR CONSOLIDATION PHASE, ON DAYS
     Route: 065
  2. METHOTREXATE [Suspect]
     Active Substance: METHOTREXATE
     Indication: Atypical teratoid/rhabdoid tumour of CNS
     Dosage: INDUCTION CHEMOTHERAPY , ON DAY 1 OF WEEKS 1,2, AND 4 AND CONTINUED FOR CONSOLIDATION PHASE, ON DAY
     Route: 037
  3. METHOTREXATE [Suspect]
     Active Substance: METHOTREXATE
     Dosage: ON DAY 1 OF WEEKS 7
     Route: 037
  4. METHOTREXATE [Suspect]
     Active Substance: METHOTREXATE
     Dosage: ON DAY 1 OF WEEKS 13
     Route: 037
  5. HYDROCORTISONE [Suspect]
     Active Substance: HYDROCORTISONE
     Indication: Atypical teratoid/rhabdoid tumour of CNS
     Dosage: INDUCTION CHEMOTHERAPY, ON DAY 1 OF WEEKS 1,2, AND 4 AND CONTINUED FOR  CONSOLIDATION PHASE, ON DAY
     Route: 037
  6. HYDROCORTISONE [Suspect]
     Active Substance: HYDROCORTISONE
     Dosage: ON DAY 1 OF WEEKS 7
     Route: 037
  7. HYDROCORTISONE [Suspect]
     Active Substance: HYDROCORTISONE
     Dosage: ON DAY 1 OF WEEKS 13
     Route: 037
  8. CYTARABINE [Suspect]
     Active Substance: CYTARABINE
     Indication: Atypical teratoid/rhabdoid tumour of CNS
     Dosage: INDUCTION CHEMOTHERAPY, ON DAY 1 OF WEEKS 1,2, AND 4 AND CONTINUED FOR CONSOLIDATION PHASE, ON DAY 1
     Route: 037
  9. CYTARABINE [Suspect]
     Active Substance: CYTARABINE
     Dosage: ON DAY 1 OF WEEKS 7
     Route: 037
  10. CYTARABINE [Suspect]
     Active Substance: CYTARABINE
     Dosage: ON DAY 1 OF WEEKS 13
     Route: 037
  11. VINCRISTINE [Suspect]
     Active Substance: VINCRISTINE
     Indication: Atypical teratoid/rhabdoid tumour of CNS
     Dosage: INDUCTION CHEMOTHERAPY, ON DAY 1 OF WEEKS 1 TO 6, AND CONTINUED FOR CONSOLIDATION PHASE, ON DAY 1 OF
     Route: 065
  12. VINCRISTINE [Suspect]
     Active Substance: VINCRISTINE
     Dosage: ON DAY 1 OF WEEKS 7 TO 12
     Route: 065
  13. VINCRISTINE [Suspect]
     Active Substance: VINCRISTINE
     Dosage: ON DAY 1 OF WEEKS 13 AND 16
     Route: 065
  14. CISPLATIN [Suspect]
     Active Substance: CISPLATIN
     Indication: Atypical teratoid/rhabdoid tumour of CNS
     Dosage: INDUCTION CHEMOTHERAPY, ON DAY 1 OF WEEKS 1 AND 4 AND CONTINUED FOR CONSOLIDATION PHASE, ON DAY 1 OF
     Route: 065
  15. CISPLATIN [Suspect]
     Active Substance: CISPLATIN
     Dosage: ON DAY 1 OF WEEK 7 AND 10
     Route: 065
  16. DOXORUBICIN [Suspect]
     Active Substance: DOXORUBICIN
     Indication: Atypical teratoid/rhabdoid tumour of CNS
     Dosage: INDUCTION CHEMOTHERAPY, ON DAY 2 AND 3 OF WEEKS 1 AND 4 AND CONTINUED POST CHEMO-RADIATION ON DAY 1-
     Route: 065
  17. DOXORUBICIN [Suspect]
     Active Substance: DOXORUBICIN
     Dosage: ON DAY 1-2 OF WEEK 13
     Route: 065
  18. CYCLOPHOSPHAMIDE [Suspect]
     Active Substance: CYCLOPHOSPHAMIDE
     Indication: Atypical teratoid/rhabdoid tumour of CNS
     Dosage: INDUCTION CHEMOTHERAPY, ON DAY 2,3 AND 4 OF WEEK 1
     Route: 065
  19. CYCLOPHOSPHAMIDE [Suspect]
     Active Substance: CYCLOPHOSPHAMIDE
     Dosage: CONSOLIDATION PHASE, ON DAY 2 OF WEEK 7 AND 10
     Route: 065
  20. CYCLOPHOSPHAMIDE [Suspect]
     Active Substance: CYCLOPHOSPHAMIDE
     Dosage: FOR POST CHEMO-RADIATION, ON DAY 1-3 OF WEEK 13 AND 16
     Route: 065
  21. ACTINOMYCIN D [Suspect]
     Active Substance: DACTINOMYCIN
     Indication: Atypical teratoid/rhabdoid tumour of CNS
     Dosage: FOR POST CHEMO RADIATION, ON DAYS 1-5 OF WEEK 16
     Route: 065

REACTIONS (3)
  - Pyrexia [Fatal]
  - Neutropenia [Unknown]
  - Off label use [Unknown]
